FAERS Safety Report 5551687-1 (Version None)
Quarter: 2007Q4

REPORT INFORMATION
  Report Type: 
  Country: None (occurrence: None)
  Receive Date: 20071129
  Receipt Date: 20070913
  Transmission Date: 20080405
  Serious: Yes (Other)
  Sender: FDA-Public Use
  Company Number: US200608000422

PATIENT
  Age: 43 Year
  Sex: Female
  Weight: 90.7 kg

DRUGS (7)
  1. ZYPREXA [Suspect]
     Indication: MOOD SWINGS
     Dosage: 2.5 MG 2/D
     Dates: start: 20050801, end: 20060401
  2. ZYPREXA ZYDIS [Suspect]
     Indication: MOOD SWINGS
     Dosage: 5 MG, DAILY (1/D), ORAL
     Route: 048
     Dates: start: 20060401
  3. DEPAKOTE [Concomitant]
  4. PROTONIX [Concomitant]
  5. PROMETRIUM [Concomitant]
  6. ATIVAN [Concomitant]
  7. DOXICLAT              (DOXYCYCLINE  HYCLATE) [Concomitant]

REACTIONS (16)
  - ACTIVITIES OF DAILY LIVING IMPAIRED [None]
  - BLADDER DISCOMFORT [None]
  - BREAST ENLARGEMENT [None]
  - DISCOMFORT [None]
  - DYSPNOEA [None]
  - FAT TISSUE INCREASED [None]
  - FLUID RETENTION [None]
  - GAIT DISTURBANCE [None]
  - GENERALISED OEDEMA [None]
  - INCONTINENCE [None]
  - INCREASED APPETITE [None]
  - LYME DISEASE [None]
  - LYMPHOEDEMA [None]
  - OEDEMA PERIPHERAL [None]
  - TREMOR [None]
  - WEIGHT INCREASED [None]
